FAERS Safety Report 18153544 (Version 2)
Quarter: 2023Q4

REPORT INFORMATION
  Report Type: Spontaneous
  Country: TR (occurrence: TR)
  Receive Date: 20200816
  Receipt Date: 20231229
  Transmission Date: 20240110
  Serious: Yes (Other)
  Sender: FDA-Public Use
  Company Number: TR-NOVARTISPH-NVSC2020TR221963

PATIENT
  Age: 33 Year
  Sex: Male

DRUGS (4)
  1. TRILEPTAL [Suspect]
     Active Substance: OXCARBAZEPINE
     Indication: Epilepsy
     Dosage: 1 DOSAGE FORM, TID (300 MG MORNING), (150 MG NOON), (300 MG NIGHT)
     Route: 048
  2. TRILEPTAL [Suspect]
     Active Substance: OXCARBAZEPINE
     Indication: PACS1 neurodevelopmental disorder
     Dosage: UNK
     Route: 065
  3. VALPROATE SODIUM [Concomitant]
     Active Substance: VALPROATE SODIUM
     Indication: Epilepsy
     Route: 065
  4. KEPPRA [Concomitant]
     Active Substance: LEVETIRACETAM
     Indication: Product used for unknown indication
     Route: 065

REACTIONS (10)
  - Platelet count decreased [Recovered/Resolved]
  - Epistaxis [Recovered/Resolved]
  - Gingival disorder [Recovered/Resolved]
  - Tooth discolouration [Recovered/Resolved]
  - Conjunctivitis [Not Recovered/Not Resolved]
  - Dysbiosis [Recovered/Resolved]
  - Chills [Unknown]
  - Muscle contractions involuntary [Unknown]
  - Oral pain [Unknown]
  - Dizziness [Unknown]
